FAERS Safety Report 4600339-0 (Version None)
Quarter: 2005Q1

REPORT INFORMATION
  Report Type: 
  Country: None (occurrence: None)
  Receive Date: 20050303
  Receipt Date: 20050216
  Transmission Date: 20050727
  Serious: Yes (Hospitalization)
  Sender: FDA-Public Use
  Company Number: US_0502112916

PATIENT
  Age: 30 Year
  Sex: Male
  Weight: 80 kg

DRUGS (2)
  1. HUMULIN N [Suspect]
     Indication: DIABETES MELLITUS
     Dosage: 10 U/1 AT BEDTIME
  2. HUMULIN R [Suspect]
     Indication: DIABETES MELLITUS
     Dosage: 8 U/3 DAY

REACTIONS (5)
  - BLINDNESS [None]
  - BRONCHITIS [None]
  - PANCREAS TRANSPLANT [None]
  - PANCREAS TRANSPLANT REJECTION [None]
  - RENAL TRANSPLANT [None]
